FAERS Safety Report 19108566 (Version 2)
Quarter: 2021Q2

REPORT INFORMATION
  Report Type: Report from Study
  Country: GB (occurrence: GB)
  Receive Date: 20210408
  Receipt Date: 20210421
  Transmission Date: 20210717
  Serious: Yes (Hospitalization, Other)
  Sender: FDA-Public Use
  Company Number: GB-ACCORD-222091

PATIENT
  Age: 62 Year
  Sex: Female

DRUGS (4)
  1. METHOTREXATE. [Suspect]
     Active Substance: METHOTREXATE
     Indication: PRODUCT USED FOR UNKNOWN INDICATION
     Dosage: 25 MG, QW (PRE?FILLED SYRINGE)
     Route: 058
     Dates: end: 2018
  2. ERELZI [Suspect]
     Active Substance: ETANERCEPT-SZZS
     Indication: RHEUMATOID ARTHRITIS
     Dosage: 50 MG, QW (PRE?FILLED PEN)
     Route: 058
     Dates: start: 20171220
  3. SULFAMETHOXAZOLE/TRIMETHOPRIM [Concomitant]
     Active Substance: SULFAMETHOXAZOLE\TRIMETHOPRIM
     Indication: PRODUCT USED FOR UNKNOWN INDICATION
     Route: 065
  4. METHOTREXATE. [Concomitant]
     Active Substance: METHOTREXATE
     Dosage: 25 MG, QW (PRE?FILLED SYRINGE)
     Route: 058

REACTIONS (7)
  - Arthralgia [Unknown]
  - Vulvovaginal dryness [Unknown]
  - Sleep disorder [Unknown]
  - Pain in extremity [Unknown]
  - Fluid retention [Unknown]
  - Rheumatoid arthritis [Unknown]
  - Pneumonia [Unknown]
